FAERS Safety Report 6656013-2 (Version None)
Quarter: 2010Q1

REPORT INFORMATION
  Report Type: 
  Country: None (occurrence: None)
  Receive Date: 20100329
  Receipt Date: 20100317
  Transmission Date: 20100710
  Serious: Yes (Hospitalization, Other)
  Sender: FDA-Public Use
  Company Number: US-PFIZER INC-2009270456

PATIENT
  Sex: Female
  Weight: 60 kg

DRUGS (6)
  1. CHANTIX [Suspect]
     Indication: SMOKING CESSATION THERAPY
     Dosage: 0.5 MG, 1X/DAY
     Route: 048
     Dates: start: 20090201, end: 20090301
  2. WELLBUTRIN [Suspect]
     Dosage: UNK
     Dates: start: 20080630
  3. TENORMIN [Concomitant]
     Dosage: 50 MG, UNK
     Dates: start: 20090205
  4. LISINOPRIL [Concomitant]
     Dosage: UNK
     Dates: start: 20090312
  5. TYLENOL W/ CODEINE NO. 3 [Concomitant]
     Indication: NECK PAIN
  6. LORAZEPAM [Concomitant]
     Indication: NECK PAIN

REACTIONS (4)
  - CHRONIC OBSTRUCTIVE PULMONARY DISEASE [None]
  - CONVULSION [None]
  - DRUG INTERACTION [None]
  - VAGINAL HAEMORRHAGE [None]
